FAERS Safety Report 25581946 (Version 1)
Quarter: 2025Q3

REPORT INFORMATION
  Report Type: Spontaneous
  Country: EU (occurrence: EU)
  Receive Date: 20250719
  Receipt Date: 20250719
  Transmission Date: 20251021
  Serious: Yes (Death, Life-Threatening, Hospitalization, Other)
  Sender: MACLEODS
  Company Number: EU-MLMSERVICE-20230503-4267666-1

PATIENT

DRUGS (2)
  1. DOXYCYCLINE [Suspect]
     Active Substance: DOXYCYCLINE
     Indication: Brucellosis
     Route: 065
  2. CIPROFLOXACIN [Suspect]
     Active Substance: CIPROFLOXACIN
     Indication: Brucellosis
     Route: 065

REACTIONS (4)
  - Hepatic encephalopathy [Fatal]
  - Disseminated intravascular coagulation [Fatal]
  - Haemorrhage intracranial [Fatal]
  - Hepatic failure [Fatal]
